FAERS Safety Report 24779031 (Version 3)
Quarter: 2025Q1

REPORT INFORMATION
  Report Type: Spontaneous
  Country: US (occurrence: US)
  Receive Date: 20241226
  Receipt Date: 20250123
  Transmission Date: 20250408
  Serious: No
  Sender: MERCK
  Company Number: US-009507513-2412USA002514

PATIENT
  Age: 52 Year
  Sex: Female

DRUGS (2)
  1. TEMODAR [Suspect]
     Active Substance: TEMOZOLOMIDE
     Indication: Glioblastoma
     Route: 048
  2. OLAPARIB [Concomitant]
     Active Substance: OLAPARIB
     Indication: Glioblastoma

REACTIONS (1)
  - Product use in unapproved indication [Unknown]
